FAERS Safety Report 14404664 (Version 8)
Quarter: 2019Q1

REPORT INFORMATION
  Report Type: Spontaneous
  Country: US (occurrence: US)
  Receive Date: 20180117
  Receipt Date: 20190225
  Transmission Date: 20190417
  Serious: No
  Sender: FDA-Public Use
  Company Number: US-BRISTOL-MYERS SQUIBB COMPANY-BMS-2018-004462

PATIENT
  Sex: Female
  Weight: 57.6 kg

DRUGS (1)
  1. ORENCIA [Suspect]
     Active Substance: ABATACEPT
     Indication: RHEUMATOID ARTHRITIS
     Dosage: 125 MG/ML, QWK
     Route: 058
     Dates: start: 201710

REACTIONS (6)
  - Nasopharyngitis [Unknown]
  - Ill-defined disorder [Unknown]
  - Infection [Unknown]
  - Injection site pain [Recovering/Resolving]
  - Chronic obstructive pulmonary disease [Unknown]
  - Influenza [Unknown]
